FAERS Safety Report 9355860 (Version 1)
Quarter: 2013Q2

REPORT INFORMATION
  Report Type: Spontaneous
  Country: DE (occurrence: None)
  Receive Date: 20130614
  Receipt Date: 20130614
  Transmission Date: 20140414
  Serious: Yes (Hospitalization)
  Sender: FDA-Public Use
  Company Number: GER/GER/13/0029990

PATIENT
  Age: 56 Year
  Sex: Male
  Weight: 75 kg

DRUGS (4)
  1. SIMVASTATIN [Suspect]
     Indication: HYPERLIPIDAEMIA
     Route: 048
     Dates: start: 2007, end: 201101
  2. LOCOL 40 [Suspect]
     Indication: HYPERLIPIDAEMIA
     Route: 048
     Dates: start: 2000, end: 2007
  3. SORTIS [Suspect]
     Indication: HYPERLIPIDAEMIA
     Route: 048
     Dates: start: 2000, end: 2007
  4. VERAPAMIL (VERAPAMIL) [Concomitant]

REACTIONS (2)
  - Muscle atrophy [None]
  - Muscular weakness [None]
